FAERS Safety Report 24964085 (Version 1)
Quarter: 2025Q1

REPORT INFORMATION
  Report Type: Spontaneous
  Country: SG (occurrence: SG)
  Receive Date: 20250213
  Receipt Date: 20250213
  Transmission Date: 20250409
  Serious: Yes (Life-Threatening, Hospitalization)
  Sender: ROCHE
  Company Number: SG-CHEPLA-2025001651

PATIENT
  Age: 30 Year
  Sex: Female

DRUGS (23)
  1. GANCICLOVIR [Suspect]
     Active Substance: GANCICLOVIR
     Indication: Cytomegalovirus infection
     Route: 042
  2. GANCICLOVIR [Suspect]
     Active Substance: GANCICLOVIR
     Indication: Infection prophylaxis
     Route: 042
  3. VALGANCICLOVIR [Suspect]
     Active Substance: VALGANCICLOVIR
     Indication: Cytomegalovirus infection
     Route: 048
  4. VALGANCICLOVIR [Suspect]
     Active Substance: VALGANCICLOVIR
     Indication: Infection prophylaxis
     Route: 048
  5. COTRIMOXAZOLE [Concomitant]
     Active Substance: SULFAMETHOXAZOLE\TRIMETHOPRIM
     Route: 048
  6. METRONIDAZOLE [Concomitant]
     Active Substance: METRONIDAZOLE
     Indication: Antibiotic prophylaxis
     Route: 042
  7. DOXYCYCLINE [Concomitant]
     Active Substance: DOXYCYCLINE
     Indication: Antibiotic prophylaxis
     Route: 048
  8. NYSTATIN [Concomitant]
     Active Substance: NYSTATIN
     Indication: Antibiotic prophylaxis
     Route: 048
  9. CEFEPIME [Concomitant]
     Active Substance: CEFEPIME HYDROCHLORIDE
     Indication: Antibiotic prophylaxis
     Route: 042
  10. ANIDULAFUNGIN [Concomitant]
     Active Substance: ANIDULAFUNGIN
     Indication: Antibiotic prophylaxis
     Route: 042
  11. ARTESUNATE [Concomitant]
     Active Substance: ARTESUNATE
     Indication: Antibiotic prophylaxis
     Route: 042
  12. TACROLIMUS [Concomitant]
     Active Substance: TACROLIMUS
     Dosage: 0.05 MG/KG TWICE A DAY
     Route: 048
  13. TACROLIMUS [Concomitant]
     Active Substance: TACROLIMUS
     Route: 042
  14. BASILIXIMAB [Concomitant]
     Active Substance: BASILIXIMAB
     Route: 065
  15. METHYLPREDNISOLONE [Concomitant]
     Active Substance: METHYLPREDNISOLONE
     Route: 042
  16. HYDROCORTISONE [Concomitant]
     Active Substance: HYDROCORTISONE
     Dosage: 50 MG 8-HOURLY
     Route: 042
  17. PREDNISOLONE [Concomitant]
     Active Substance: PREDNISOLONE
     Dosage: 30 MG DAILY
     Route: 048
  18. PREDNISOLONE [Concomitant]
     Active Substance: PREDNISOLONE
     Dosage: REDUCED BY 2 MG EVERY WEEK TILL A DOSE OF 5 MG DAILY WAS REACHED
     Route: 048
  19. AZATHIOPRINE [Concomitant]
     Active Substance: AZATHIOPRINE
     Dosage: 2 MG/KG DAILY
     Route: 048
  20. FOLIC ACID [Concomitant]
     Active Substance: FOLIC ACID
     Route: 065
  21. ENOXAPARIN [Concomitant]
     Active Substance: ENOXAPARIN
     Route: 058
  22. ACYCLOVIR [Concomitant]
     Active Substance: ACYCLOVIR
     Indication: Infection prophylaxis
  23. ASPIRIN [Concomitant]
     Active Substance: ASPIRIN

REACTIONS (2)
  - Neutropenia [Recovered/Resolved]
  - Off label use [Unknown]
